FAERS Safety Report 9000043 (Version 5)
Quarter: 2013Q2

REPORT INFORMATION
  Report Type: Report from Study
  Country: JP (occurrence: JP)
  Receive Date: 20130102
  Receipt Date: 20130606
  Transmission Date: 20140414
  Serious: Yes (Life-Threatening, Hospitalization)
  Sender: FDA-Public Use
  Company Number: JP-PFIZER INC-2012330252

PATIENT
  Age: 80 Year
  Sex: Female
  Weight: 46.5 kg

DRUGS (24)
  1. CRIZOTINIB [Suspect]
     Indication: NON-SMALL CELL LUNG CANCER
     Dosage: 250 MG, 1X/DAY
     Route: 048
     Dates: start: 20121119, end: 20121119
  2. CRIZOTINIB [Suspect]
     Dosage: 250 MG, 2X/DAY
     Route: 048
     Dates: start: 20121126, end: 20121224
  3. LASIX [Suspect]
     Dosage: 20 MG, AS NEEDED
     Dates: start: 20121223, end: 20121228
  4. FUROSEMIDE [Suspect]
     Dosage: 20 MG, 1X/DAY
     Route: 048
     Dates: start: 20121222, end: 20121225
  5. LOXOT [Concomitant]
     Dosage: 60 MG, 3X/DAY
     Route: 048
     Dates: end: 20121123
  6. TERNELIN [Concomitant]
     Dosage: 1 MG, 2X/DAY
     Route: 048
     Dates: end: 20121130
  7. AMLODIN OD [Concomitant]
     Dosage: 5 MG, 1X/DAY
     Route: 048
     Dates: end: 20121130
  8. ISALON [Concomitant]
     Dosage: 100 MG, 3X/DAY
     Route: 048
     Dates: end: 20121124
  9. PRIMPERAN [Concomitant]
     Dosage: 5 MG, 3X/DAY
     Route: 048
     Dates: start: 20121118, end: 20121225
  10. JUVELA [Concomitant]
     Dosage: 50 MG, 2X/DAY
     Route: 048
     Dates: end: 20121130
  11. WARFARIN [Concomitant]
     Dosage: 1.5 MG, 1X/DAY
     Route: 048
     Dates: start: 20121119, end: 20121121
  12. WARFARIN [Concomitant]
     Dosage: 2 MG, 1X/DAY
     Route: 048
     Dates: start: 20121122, end: 20121128
  13. WARFARIN [Concomitant]
     Dosage: 1 MG, 1X/DAY
     Route: 048
     Dates: start: 20121129, end: 20121205
  14. WARFARIN [Concomitant]
     Dosage: 1.5 MG, 1X/DAY
     Route: 048
     Dates: start: 20121206, end: 20121219
  15. WARFARIN [Concomitant]
     Dosage: 1.25 MG, 1X/DAY
     Route: 048
     Dates: start: 20121220, end: 20121225
  16. WARFARIN [Concomitant]
     Dosage: 1 MG, 1X/DAY
     Route: 048
     Dates: start: 20130104, end: 20130111
  17. WARFARIN [Concomitant]
     Dosage: 1.5 MG, 1X/DAY
     Route: 048
     Dates: start: 20130112, end: 20130117
  18. WARFARIN [Concomitant]
     Dosage: 2 MG, 1X/DAY
     Route: 048
     Dates: start: 20130118
  19. KETAS [Concomitant]
     Dosage: 10 MG, 2X/DAY
     Route: 048
     Dates: end: 20121130
  20. SHAKUYAKU-KANZO-TO [Concomitant]
     Dosage: 2.5 MG, 3X/DAY
     Route: 048
     Dates: end: 20121122
  21. EMEND [Concomitant]
     Dosage: 80 MG, 1X/DAY
     Route: 048
     Dates: start: 20121127, end: 20121130
  22. EMEND [Concomitant]
     Dosage: 125 MG, 1X/DAY
     Route: 048
     Dates: start: 20121126, end: 20121126
  23. KYTRIL [Concomitant]
     Dosage: 3 MG, 1X/DAY
     Route: 041
     Dates: start: 20121119, end: 20121119
  24. CELECOXIB [Concomitant]
     Dosage: 200 MG, 2X/DAY
     Dates: start: 20121124, end: 20121225

REACTIONS (2)
  - Interstitial lung disease [Recovered/Resolved with Sequelae]
  - Hypokalaemia [Recovered/Resolved]
